FAERS Safety Report 8127360-2 (Version None)
Quarter: 2012Q1

REPORT INFORMATION
  Report Type: 
  Country: None (occurrence: None)
  Receive Date: 20120210
  Receipt Date: 20120130
  Transmission Date: 20120608
  Serious: Yes (Hospitalization, Other)
  Sender: FDA-Public Use
  Company Number: US-JNJFOC-20111102598

PATIENT
  Sex: Female
  Weight: 88.91 kg

DRUGS (4)
  1. REMICADE [Suspect]
     Indication: COLITIS ULCERATIVE
     Route: 042
     Dates: start: 20110927
  2. ASACOL [Concomitant]
     Indication: COLITIS ULCERATIVE
     Route: 048
     Dates: start: 20080101
  3. LOMOTIL [Concomitant]
     Indication: DIARRHOEA
     Dosage: 2-3 DAILY
     Route: 048
     Dates: start: 20110101
  4. TRAMADOL HCL [Concomitant]
     Indication: PAIN
     Route: 048
     Dates: start: 20110401

REACTIONS (4)
  - CYTOMEGALOVIRUS COLITIS [None]
  - SOMNOLENCE [None]
  - ARTHRALGIA [None]
  - MYALGIA [None]
